FAERS Safety Report 21857386 (Version 2)
Quarter: 2023Q1

REPORT INFORMATION
  Report Type: Spontaneous
  Country: US (occurrence: US)
  Receive Date: 20230113
  Receipt Date: 20230116
  Transmission Date: 20230417
  Serious: No
  Sender: FDA-Public Use
  Company Number: US-SUNOVION-2023SUN000050AA

PATIENT
  Age: 40 Year
  Sex: Female

DRUGS (1)
  1. LATUDA [Suspect]
     Active Substance: LURASIDONE HYDROCHLORIDE
     Dosage: 60 MG, QD
     Route: 048

REACTIONS (3)
  - Feeling abnormal [Unknown]
  - Malaise [Unknown]
  - Therapy interrupted [Unknown]

NARRATIVE: CASE EVENT DATE: 20230101
